FAERS Safety Report 5206730-6 (Version None)
Quarter: 2007Q1

REPORT INFORMATION
  Report Type: 
  Country: None (occurrence: None)
  Receive Date: 20070109
  Receipt Date: 20061223
  Transmission Date: 20070707
  Serious: Yes (Other)
  Sender: FDA-Public Use
  Company Number: ENT 2006-0172

PATIENT
  Age: 77 Year
  Sex: Female

DRUGS (8)
  1. COMTAN [Suspect]
     Indication: PARKINSON'S DISEASE
     Dosage: 600 MG (200 MG, 3 IN 1 D) ORAL
     Route: 048
     Dates: start: 20061115
  2. ZAROXOLYN [Suspect]
     Dosage: 7.5 MG (2.5 MG, 3 IN 1 D)
  3. CARBIDOPA AND LEVODOPA [Suspect]
     Dosage: 100/25, 2 TABLETS TID
  4. CRESTOR [Concomitant]
  5. ASPIRIN [Concomitant]
  6. ALTACE [Concomitant]
  7. GLUCOSAMINE [Concomitant]
  8. PALAFER [Concomitant]

REACTIONS (3)
  - BLOOD CATECHOLAMINES INCREASED [None]
  - DELUSIONAL DISORDER, UNSPECIFIED TYPE [None]
  - HALLUCINATION [None]
